FAERS Safety Report 9405228 (Version 1)
Quarter: 2013Q3

REPORT INFORMATION
  Report Type: Report from Study
  Country: US (occurrence: US)
  Receive Date: 20130717
  Receipt Date: 20130717
  Transmission Date: 20140515
  Serious: Yes (Hospitalization)
  Sender: FDA-Public Use
  Company Number: PHHO2013US009128

PATIENT
  Age: 54 Year
  Sex: Female
  Weight: 48.6 kg

DRUGS (4)
  1. LDK378 [Suspect]
     Indication: NON-SMALL CELL LUNG CANCER
     Dosage: 750 MG, QD
     Route: 048
     Dates: start: 20130624
  2. DEXAMETHASONE SANDOZ [Suspect]
     Indication: INFLAMMATION
     Dosage: 2 MG, QD
     Route: 048
     Dates: start: 20130531
  3. CODEINE [Concomitant]
     Indication: COUGH
     Dosage: 5 ML, PRN
     Route: 048
  4. BENZONATATE [Concomitant]
     Indication: COUGH
     Dosage: 200 MG, PRN

REACTIONS (2)
  - Anaemia [Recovering/Resolving]
  - Pneumonia [Not Recovered/Not Resolved]
